FAERS Safety Report 12716467 (Version 2)
Quarter: 2016Q3

REPORT INFORMATION
  Report Type: Spontaneous
  Country: JP (occurrence: JP)
  Receive Date: 20160906
  Receipt Date: 20160909
  Transmission Date: 20161109
  Serious: Yes (Hospitalization, Other)
  Sender: FDA-Public Use
  Company Number: JP-BAYER-2016-171004

PATIENT
  Sex: Male
  Weight: 53 kg

DRUGS (5)
  1. PRASUGREL [Interacting]
     Active Substance: PRASUGREL
     Indication: MYOCARDIAL INFARCTION
     Route: 048
  2. HYDROXYETHYLSTARCH [Suspect]
     Active Substance: HETASTARCH
     Indication: GASTRIC ULCER HAEMORRHAGE
  3. BAYASPIRIN [Suspect]
     Active Substance: ASPIRIN
     Indication: MYOCARDIAL INFARCTION
     Route: 048
  4. HEPARIN [Interacting]
     Active Substance: HEPARIN SODIUM
     Indication: MYOCARDIAL INFARCTION
     Route: 041
  5. HYDROXYETHYLSTARCH [Suspect]
     Active Substance: HETASTARCH
     Indication: SHOCK HAEMORRHAGIC
     Dosage: 3500 ML, UNK
     Route: 041

REACTIONS (8)
  - Gastric polyps [None]
  - Lung disorder [None]
  - Shock haemorrhagic [None]
  - Acute kidney injury [None]
  - Labelled drug-drug interaction medication error [None]
  - Gastric ulcer haemorrhage [None]
  - Drug administration error [None]
  - Gastric haemorrhage [None]
